FAERS Safety Report 11438167 (Version 1)
Quarter: 2015Q3

REPORT INFORMATION
  Report Type: Other
  Country: IT (occurrence: IT)
  Receive Date: 20150901
  Receipt Date: 20150901
  Transmission Date: 20151125
  Serious: Yes (Hospitalization)
  Sender: FDA-Public Use
  Company Number: IT-NOVEN PHARMACEUTICALS, INC.-15IT013675

PATIENT
  Age: 65 Year
  Sex: Female
  Weight: 64 kg

DRUGS (7)
  1. PROPOFOL. [Concomitant]
     Active Substance: PROPOFOL
     Indication: PRODUCT USED FOR UNKNOWN INDICATION
     Dosage: UNK
     Dates: start: 20150127, end: 20150127
  2. PAROXETINE [Suspect]
     Active Substance: PAROXETINE\PAROXETINE HYDROCHLORIDE
     Indication: DEPRESSION
     Dosage: 20 MG, QD
     Route: 048
     Dates: start: 20140101, end: 20150127
  3. ADRENALINA                         /00003901/ [Concomitant]
     Indication: PRODUCT USED FOR UNKNOWN INDICATION
  4. VASOKINOX [Concomitant]
     Indication: PRODUCT USED FOR UNKNOWN INDICATION
     Dosage: UNK
     Dates: start: 20150127, end: 20150127
  5. METHYLTHIONINIUM CHLORIDE [Suspect]
     Active Substance: METHYLENE BLUE
     Indication: VASOPLEGIA SYNDROME
     Dosage: 100 MG, UNK
     Route: 042
     Dates: start: 20150128, end: 20150128
  6. NORADRENALINA TARTRATO [Concomitant]
     Indication: PRODUCT USED FOR UNKNOWN INDICATION
  7. FENTANEST                          /00174602/ [Concomitant]
     Indication: PRODUCT USED FOR UNKNOWN INDICATION

REACTIONS (6)
  - Off label use [Recovered/Resolved]
  - Drug interaction [Recovered/Resolved]
  - Nystagmus [Recovered/Resolved]
  - Coma [Recovered/Resolved]
  - Serotonin syndrome [Recovered/Resolved]
  - Muscle rigidity [Recovered/Resolved]

NARRATIVE: CASE EVENT DATE: 20150128
